FAERS Safety Report 16663519 (Version 1)
Quarter: 2019Q3

REPORT INFORMATION
  Report Type: Report from Study
  Country: CA (occurrence: CA)
  Receive Date: 20190802
  Receipt Date: 20190802
  Transmission Date: 20191004
  Serious: Yes (Other)
  Sender: FDA-Public Use
  Company Number: CA-MYLANLABS-2019M1072191

PATIENT

DRUGS (4)
  1. LEUCOVORIN                         /00566701/ [Concomitant]
     Active Substance: LEUCOVORIN
     Indication: PROPHYLAXIS
     Dosage: STARTED 24 H AFTER INITIATION OF METHOTREXATE INFUSION
     Route: 048
  2. SODIUM BICARBONATE. [Concomitant]
     Active Substance: SODIUM BICARBONATE
     Indication: PROPHYLAXIS AGAINST DEHYDRATION
     Dosage: PRE-HYDRATION WITH 750 ML/M2 FLUID OVER 1H CONTAINING 0.45%SODIUM CHLORIDE AND 40 MMOL/L OF SODIU...
     Route: 065
  3. METHOTREXATE. [Suspect]
     Active Substance: METHOTREXATE
     Indication: OSTEOSARCOMA
     Dosage: HIGH-DOSE METHOTREXATE OVER 4 HOURS; COMPLETED 35 CYCLES
     Route: 041
  4. SODIUM CHLORIDE. [Concomitant]
     Active Substance: SODIUM CHLORIDE
     Indication: PROPHYLAXIS AGAINST DEHYDRATION
     Dosage: PRE-HYDRATION WITH 750 ML/M2 FLUID OVER 1H CONTAINING 0.45%SODIUM CHLORIDE AND 40 MMOL/L OF SODIU...
     Route: 065

REACTIONS (1)
  - Mucosal inflammation [Unknown]
